FAERS Safety Report 10058112 (Version 1)
Quarter: 2014Q2

REPORT INFORMATION
  Report Type: Spontaneous
  Country: US (occurrence: None)
  Receive Date: 20140402
  Receipt Date: 20140402
  Transmission Date: 20141212
  Serious: Yes (Hospitalization)
  Sender: FDA-Public Use
  Company Number: SYM-2014-19147

PATIENT
  Sex: 0

DRUGS (5)
  1. FLUOROURACIL (FLUOROURACIL) [Suspect]
     Indication: NEOPLASM
     Route: 040
  2. OXALIPLATIN (OXALIPLATIN) [Suspect]
     Indication: NEOPLASM
  3. LEUCOVORIN (FOLINIC ACID) (FOLINIC ACID) [Suspect]
     Indication: NEOPLASM
     Route: 042
  4. BEVACIZUMAB (BEVACIZUMAB) [Suspect]
     Indication: NEOPLASM
     Route: 042
  5. INVESTIGATIONAL DRUG (NULL) [Suspect]
     Indication: NEOPLASM

REACTIONS (1)
  - Hyperglycaemia [None]
